FAERS Safety Report 9945047 (Version 1)
Quarter: 2014Q1

REPORT INFORMATION
  Report Type: Report from Study
  Country: US (occurrence: US)
  Receive Date: 20140303
  Receipt Date: 20140303
  Transmission Date: 20141002
  Serious: No
  Sender: FDA-Public Use
  Company Number: US-ABBVIE-13P-163-1053137-00

PATIENT
  Age: 27 Year
  Sex: Female

DRUGS (5)
  1. HUMIRA [Suspect]
     Indication: ANKYLOSING SPONDYLITIS
     Dates: start: 20121015, end: 20121210
  2. HUMIRA [Suspect]
     Dates: start: 201301, end: 20130211
  3. NASONEX [Concomitant]
     Indication: NASAL POLYPS
     Dosage: 2 SQUIRTS IN EACH NOSTRIL DAILY
  4. ADVIL [Concomitant]
     Indication: PAIN
  5. ADVIL [Concomitant]
     Indication: SWELLING

REACTIONS (4)
  - Joint stiffness [Not Recovered/Not Resolved]
  - Injection site pruritus [Not Recovered/Not Resolved]
  - Oedema peripheral [Not Recovered/Not Resolved]
  - Urticaria [Not Recovered/Not Resolved]
